FAERS Safety Report 17441874 (Version 2)
Quarter: 2020Q2

REPORT INFORMATION
  Report Type: Report from Study
  Country: US (occurrence: US)
  Receive Date: 20200220
  Receipt Date: 20200415
  Transmission Date: 20200713
  Serious: Yes (Other)
  Sender: FDA-Public Use
  Company Number: US-JNJFOC-20200217285

PATIENT
  Age: 27 Year
  Sex: Male

DRUGS (4)
  1. SPRAVATO [Suspect]
     Active Substance: ESKETAMINE
     Dosage: DOSE REPORTED AS ^42 MG^
  2. TESTOSTERONE. [Concomitant]
     Active Substance: TESTOSTERONE
     Indication: TRANSGENDER HORMONAL THERAPY
  3. SPRAVATO [Suspect]
     Active Substance: ESKETAMINE
     Indication: DEPRESSION
     Dates: start: 20200130
  4. SPRAVATO [Suspect]
     Active Substance: ESKETAMINE
     Dates: start: 20200210, end: 20200210

REACTIONS (4)
  - Dissociation [Recovered/Resolved]
  - Vomiting [Recovered/Resolved]
  - Sedation [Recovered/Resolved]
  - Nausea [Recovered/Resolved]

NARRATIVE: CASE EVENT DATE: 20200210
